FAERS Safety Report 24021601 (Version 1)
Quarter: 2024Q2

REPORT INFORMATION
  Report Type: Spontaneous
  Country: HK (occurrence: HK)
  Receive Date: 20240627
  Receipt Date: 20240627
  Transmission Date: 20240716
  Serious: No
  Sender: FDA-Public Use
  Company Number: HK-ROCHE-3576569

PATIENT

DRUGS (4)
  1. GLOFITAMAB [Suspect]
     Active Substance: GLOFITAMAB
     Indication: Product used for unknown indication
     Route: 065
  2. POLIVY [Suspect]
     Active Substance: POLATUZUMAB VEDOTIN-PIIQ
     Indication: Product used for unknown indication
     Route: 065
  3. BENDAMUSTINE [Suspect]
     Active Substance: BENDAMUSTINE
     Indication: Product used for unknown indication
     Route: 065
  4. RITUXIMAB [Suspect]
     Active Substance: RITUXIMAB
     Indication: Product used for unknown indication
     Route: 041

REACTIONS (1)
  - Disease progression [Unknown]
